FAERS Safety Report 5243672-4 (Version None)
Quarter: 2007Q1

REPORT INFORMATION
  Report Type: 
  Country: None (occurrence: None)
  Receive Date: 20070220
  Receipt Date: 20070220
  Transmission Date: 20070707
  Serious: Yes (Other)
  Sender: FDA-Public Use
  Company Number: None

PATIENT
  Age: 47 Year
  Sex: Male
  Weight: 97.5234 kg

DRUGS (1)
  1. MEFLOQUINE [Suspect]
     Indication: MALARIA PROPHYLAXIS
     Dosage: STD 1/ WEEK PO
     Route: 048
     Dates: start: 20061126, end: 20061224

REACTIONS (4)
  - CONDITION AGGRAVATED [None]
  - FATIGUE [None]
  - MIDDLE INSOMNIA [None]
  - SENSITIVITY OF TEETH [None]
